FAERS Safety Report 7138534-1 (Version None)
Quarter: 2010Q4

REPORT INFORMATION
  Report Type: 
  Country: None (occurrence: None)
  Receive Date: 20101206
  Receipt Date: 20101119
  Transmission Date: 20110411
  Serious: No
  Sender: FDA-Public Use
  Company Number: PHHY2010US78983

PATIENT
  Sex: Male
  Weight: 117 kg

DRUGS (3)
  1. EXJADE [Suspect]
     Indication: LYMPHOPROLIFERATIVE DISORDER
     Dosage: 2250 MG, QD
     Route: 048
     Dates: start: 20100518
  2. EXJADE [Suspect]
     Indication: SERUM FERRITIN INCREASED
     Dosage: UNK
     Route: 048
     Dates: start: 20100627
  3. EXJADE [Suspect]
     Dosage: 2250 MG, QD
     Route: 048
     Dates: start: 20100719

REACTIONS (1)
  - BLOOD CREATININE INCREASED [None]
